FAERS Safety Report 6140827-1 (Version None)
Quarter: 2009Q1

REPORT INFORMATION
  Report Type: 
  Country: None (occurrence: None)
  Receive Date: 20090331
  Receipt Date: 20090318
  Transmission Date: 20090719
  Serious: No
  Sender: FDA-Public Use
  Company Number: 2008-170349-NL

PATIENT
  Age: 33 Year
  Sex: Female

DRUGS (11)
  1. FOLLIPTROPIN BETA [Suspect]
     Indication: OVULATION INDUCTION
     Dosage: 225 IU/75 IU INTRAMUSCULAR
     Route: 030
     Dates: start: 20071107, end: 20071113
  2. FOLLIPTROPIN BETA [Suspect]
     Indication: OVULATION INDUCTION
     Dosage: 225 IU/75 IU INTRAMUSCULAR
     Route: 030
     Dates: start: 20071114, end: 20071114
  3. NORGESTREL AND ETHINYL ESTRADIOL [Concomitant]
  4. CETRORELIX ACETATE [Concomitant]
  5. CHORIONIC GONADOTROPIN [Concomitant]
  6. SHIREOTOU [Concomitant]
  7. HYDROXYPROGESTERONE CAPROATE [Concomitant]
  8. ESTRADIOL BENZOATE [Concomitant]
  9. PROGESTERONE [Concomitant]
  10. ESTRADIOL [Concomitant]
  11. BUFFERIN [Concomitant]

REACTIONS (9)
  - ABDOMINAL DISTENSION [None]
  - ABDOMINAL PAIN LOWER [None]
  - ABDOMINAL PAIN UPPER [None]
  - ABORTION SPONTANEOUS [None]
  - ADNEXA UTERI PAIN [None]
  - ARTHRALGIA [None]
  - BACK PAIN [None]
  - DRUG EXPOSURE DURING PREGNANCY [None]
  - OVARIAN HYPERSTIMULATION SYNDROME [None]
